FAERS Safety Report 8182795-7 (Version None)
Quarter: 2012Q1

REPORT INFORMATION
  Report Type: 
  Country: None (occurrence: None)
  Receive Date: 20120305
  Receipt Date: 20120224
  Transmission Date: 20120608
  Serious: Yes (Other)
  Sender: FDA-Public Use
  Company Number: US-BAYER-2011-085050

PATIENT
  Age: 36 Year
  Sex: Female
  Weight: 68.027 kg

DRUGS (1)
  1. DROSPIRENONE AND ETHINYL ESTRADIOL [Suspect]
     Indication: PREMENSTRUAL SYNDROME
     Dosage: UNK

REACTIONS (8)
  - THROMBOSIS [None]
  - VARICOSE VEIN [None]
  - FEAR [None]
  - PAIN [None]
  - MIGRAINE [None]
  - INJURY [None]
  - DEEP VEIN THROMBOSIS [None]
  - FOOD ALLERGY [None]
